FAERS Safety Report 4560080-X (Version None)
Quarter: 2005Q1

REPORT INFORMATION
  Report Type: 
  Country: None (occurrence: None)
  Receive Date: 20050124
  Receipt Date: 20050112
  Transmission Date: 20050727
  Serious: Yes (Other)
  Sender: FDA-Public Use
  Company Number: 2005011747

PATIENT
  Age: 72 Year
  Sex: Female
  Weight: 55.7924 kg

DRUGS (1)
  1. ROLAIDS [Suspect]
     Indication: DYSPEPSIA
     Dosage: ONE TABLET 2-3 TIMES DAILY, ORAL
     Route: 048
     Dates: start: 19950101

REACTIONS (1)
  - OPTIC NERVE NEOPLASM [None]
